FAERS Safety Report 9391228 (Version 6)
Quarter: 2014Q2

REPORT INFORMATION
  Report Type: Spontaneous
  Country: US (occurrence: US)
  Receive Date: 20130709
  Receipt Date: 20140417
  Transmission Date: 20141212
  Serious: Yes (Other)
  Sender: FDA-Public Use
  Company Number: US-PFIZER INC-2013197609

PATIENT
  Age: 79 Year
  Sex: Male
  Weight: 64.4 kg

DRUGS (10)
  1. SUTENT [Suspect]
     Indication: THYROID CANCER
     Dosage: 50 MG, DAILY
     Dates: start: 201202
  2. SUTENT [Suspect]
     Dosage: 37.5 MG, UNK
  3. SUTENT [Suspect]
     Dosage: 50 MG, UNK
  4. LEVOTHYROXINE [Concomitant]
     Dosage: UNK
  5. PRED-FORTE [Concomitant]
     Dosage: UNK
  6. ASPIRIN [Concomitant]
     Dosage: 81 MG, UNK
  7. LOVASTATIN [Concomitant]
     Dosage: UNK
  8. IMODIUM A-D [Concomitant]
     Dosage: UNK
  9. BENICAR [Concomitant]
     Indication: HYPERTENSION
     Dosage: UNK
  10. LOSARTAN [Concomitant]
     Indication: HYPERTENSION
     Dosage: UNK

REACTIONS (14)
  - Off label use [Unknown]
  - Haemorrhagic diathesis [Unknown]
  - Disease progression [Unknown]
  - Thyroid cancer [Unknown]
  - Diarrhoea [Not Recovered/Not Resolved]
  - Pain in extremity [Recovered/Resolved]
  - Peripheral swelling [Recovered/Resolved]
  - Joint swelling [Recovered/Resolved]
  - Flatulence [Unknown]
  - Dyspepsia [Unknown]
  - Oral pain [Unknown]
  - White blood cell count decreased [Not Recovered/Not Resolved]
  - Thyroglobulin decreased [Unknown]
  - Thyroglobulin increased [Unknown]
